FAERS Safety Report 10787204 (Version 1)
Quarter: 2015Q1

REPORT INFORMATION
  Report Type: Spontaneous
  Country: US (occurrence: US)
  Receive Date: 20150211
  Receipt Date: 20150211
  Transmission Date: 20150721
  Serious: Yes (Hospitalization)
  Sender: FDA-Public Use
  Company Number: US-PERRIGO-15US001746

PATIENT
  Sex: Male

DRUGS (3)
  1. TESTOSTERONE CYPIONATE. [Suspect]
     Active Substance: TESTOSTERONE CYPIONATE
     Indication: BLOOD TESTOSTERONE DECREASED
     Dosage: UNKNOWN, UNKNOWN
     Route: 065
     Dates: start: 201012, end: 201311
  2. DEPO-TESTOSTERONE [Suspect]
     Active Substance: TESTOSTERONE CYPIONATE
     Indication: BLOOD TESTOSTERONE DECREASED
     Dosage: UNKNOWN, UNKNOWN
     Route: 065
     Dates: start: 201012, end: 201311
  3. TESTOSTERONE CYPIONATE USP RX 200 MG/ML 9Z8 [Suspect]
     Active Substance: TESTOSTERONE CYPIONATE
     Indication: BLOOD TESTOSTERONE DECREASED
     Dosage: UNKNOWN, UNKNOWN
     Route: 030
     Dates: start: 201012, end: 201311

REACTIONS (4)
  - Aortic embolus [Unknown]
  - Hypertension [Unknown]
  - Pulmonary embolism [Unknown]
  - Troponin increased [Unknown]

NARRATIVE: CASE EVENT DATE: 20120813
